FAERS Safety Report 8173370-9 (Version None)
Quarter: 2012Q1

REPORT INFORMATION
  Report Type: 
  Country: None (occurrence: None)
  Receive Date: 20120229
  Receipt Date: 20120222
  Transmission Date: 20120608
  Serious: Yes (Other)
  Sender: FDA-Public Use
  Company Number: IN-ASTELLAS-2012EU001445

PATIENT

DRUGS (2)
  1. TACROLIMUS [Suspect]
     Indication: STASIS DERMATITIS
     Dosage: 0.1 %, BID
     Route: 061
  2. DOXYCYCLINE [Suspect]
     Indication: STASIS DERMATITIS
     Dosage: 100 MG, UID/QD
     Route: 048

REACTIONS (2)
  - OFF LABEL USE [None]
  - ANGIOEDEMA [None]
